FAERS Safety Report 16860042 (Version 1)
Quarter: 2019Q3

REPORT INFORMATION
  Report Type: Spontaneous
  Country: CA (occurrence: CA)
  Receive Date: 20190927
  Receipt Date: 20190927
  Transmission Date: 20191005
  Serious: Yes (Other)
  Sender: FDA-Public Use
  Company Number: CA-BAUSCH-BL-2019-054452

PATIENT
  Age: 7 Decade
  Sex: Male

DRUGS (2)
  1. DEXAMETHASONE. [Suspect]
     Active Substance: DEXAMETHASONE
     Indication: POSTOPERATIVE ABSCESS
  2. DEXAMETHASONE. [Suspect]
     Active Substance: DEXAMETHASONE
     Indication: BRAIN ABSCESS
     Dosage: HIGH DOSE
     Route: 065

REACTIONS (1)
  - Strongyloidiasis [Recovered/Resolved]
